FAERS Safety Report 21835728 (Version 2)
Quarter: 2023Q1

REPORT INFORMATION
  Report Type: Report from Study
  Country: US (occurrence: US)
  Receive Date: 20230109
  Receipt Date: 20230119
  Transmission Date: 20230418
  Serious: Yes (Hospitalization, Other)
  Sender: FDA-Public Use
  Company Number: US-ABBVIE-4261441

PATIENT
  Sex: Female
  Weight: 63 kg

DRUGS (2)
  1. HUMIRA [Suspect]
     Active Substance: ADALIMUMAB
     Indication: Rheumatoid arthritis
     Dosage: CITRATE FREE; STRENGTH 40 MG
     Route: 058
     Dates: start: 2010, end: 202209
  2. HUMIRA [Suspect]
     Active Substance: ADALIMUMAB
     Dosage: CITRATE FREE; STRENGTH 40 MG
     Route: 058
     Dates: start: 20230115

REACTIONS (3)
  - Bladder cancer [Recovered/Resolved]
  - Hypertension [Recovered/Resolved]
  - Renal cancer stage II [Recovered/Resolved]

NARRATIVE: CASE EVENT DATE: 20180101
